FAERS Safety Report 16833219 (Version 1)
Quarter: 2019Q3

REPORT INFORMATION
  Report Type: Spontaneous
  Country: US (occurrence: US)
  Receive Date: 20190731
  Receipt Date: 20190731
  Transmission Date: 20191005
  Serious: Yes (Hospitalization)
  Sender: FDA-Public Use
  Company Number: None

PATIENT
  Age: 65 Year
  Sex: Female

DRUGS (2)
  1. KISQALI [Suspect]
     Active Substance: RIBOCICLIB
     Dates: start: 201907
  2. LETROZOLE. [Concomitant]
     Active Substance: LETROZOLE

REACTIONS (3)
  - Anxiety [None]
  - Chest pain [None]
  - Dyspnoea [None]

NARRATIVE: CASE EVENT DATE: 20190731
